FAERS Safety Report 8347113-X (Version None)
Quarter: 2012Q2

REPORT INFORMATION
  Report Type: 
  Country: None (occurrence: None)
  Receive Date: 20120509
  Receipt Date: 20120503
  Transmission Date: 20120825
  Serious: Yes (Other)
  Sender: FDA-Public Use
  Company Number: US-PFIZER INC-2012109241

PATIENT
  Age: 55 Year
  Sex: Male
  Weight: 82.993 kg

DRUGS (4)
  1. CHANTIX [Suspect]
     Dosage: 1 MG, 2X/DAY
     Route: 048
     Dates: start: 20120401, end: 20120501
  2. MORPHINE [Concomitant]
     Dosage: UNK 2X/DAY
  3. CHANTIX [Suspect]
     Indication: SMOKING CESSATION THERAPY
     Dosage: 0.5 MG, 1X/DAY
     Route: 048
     Dates: start: 20120401, end: 20120401
  4. SERTRALINE [Concomitant]
     Dosage: 50 MG, UNK

REACTIONS (3)
  - GENITAL RASH [None]
  - SCRATCH [None]
  - RASH [None]
